FAERS Safety Report 9687500 (Version 1)
Quarter: 2013Q4

REPORT INFORMATION
  Report Type: Spontaneous
  Country: US (occurrence: US)
  Receive Date: 20131114
  Receipt Date: 20131114
  Transmission Date: 20140711
  Serious: Yes (Hospitalization)
  Sender: FDA-Public Use
  Company Number: US-BRISTOL-MYERS SQUIBB COMPANY-19736032

PATIENT
  Age: 56 Year
  Sex: Female
  Weight: 65.76 kg

DRUGS (1)
  1. ABILIFY [Suspect]
     Indication: BIPOLAR DISORDER
     Dosage: 4-5 MG; INCREASED TO 10 MG; DOWN TO 4 MG; DOWN TO 2 MG.
     Dates: start: 2008

REACTIONS (2)
  - Cholecystectomy [Unknown]
  - Drooling [Unknown]
